FAERS Safety Report 5025727-2 (Version None)
Quarter: 2006Q2

REPORT INFORMATION
  Report Type: 
  Country: None (occurrence: None)
  Receive Date: 20060614
  Receipt Date: 20060321
  Transmission Date: 20061013
  Serious: Yes (Death)
  Sender: FDA-Public Use
  Company Number: US-BRISTOL-MYERS SQUIBB COMPANY-13322169

PATIENT
  Age: 52 Year
  Sex: Female

DRUGS (7)
  1. COUMADIN [Suspect]
     Route: 048
  2. LASIX [Concomitant]
  3. ALTACE [Concomitant]
  4. ASPIRIN [Concomitant]
  5. PEPCID [Concomitant]
  6. LOPRESSOR [Concomitant]
  7. ADVAIR DISKUS 100/50 [Concomitant]

REACTIONS (1)
  - POST PROCEDURAL COMPLICATION [None]
